FAERS Safety Report 5504000-X (Version None)
Quarter: 2007Q4

REPORT INFORMATION
  Report Type: 
  Country: None (occurrence: None)
  Receive Date: 20071101
  Receipt Date: 20071023
  Transmission Date: 20080405
  Serious: Yes (Other)
  Sender: FDA-Public Use
  Company Number: BR-JNJFOC-20071006392

PATIENT
  Age: 20 Year
  Sex: Female
  Weight: 51 kg

DRUGS (2)
  1. HALOPERIDOL DECANOATE [Suspect]
     Indication: PSYCHOTIC DISORDER
     Route: 030
  2. AKINETON [Concomitant]
     Route: 048

REACTIONS (6)
  - AGGRESSION [None]
  - AGITATION [None]
  - INSOMNIA [None]
  - MOVEMENT DISORDER [None]
  - SLEEP DISORDER [None]
  - SPEECH DISORDER [None]
